FAERS Safety Report 24349506 (Version 2)
Quarter: 2024Q4

REPORT INFORMATION
  Report Type: Spontaneous
  Country: US (occurrence: US)
  Receive Date: 20240923
  Receipt Date: 20241010
  Transmission Date: 20250114
  Serious: Yes (Other)
  Sender: AUROBINDO
  Company Number: US-AUROBINDO-AUR-APL-2024-045138

PATIENT
  Age: 68 Year
  Sex: Male

DRUGS (7)
  1. BELINOSTAT [Suspect]
     Active Substance: BELINOSTAT
     Indication: Enteropathy-associated T-cell lymphoma
     Dosage: UNK
     Route: 065
  2. CYCLOPHOSPHAMIDE [Concomitant]
     Active Substance: CYCLOPHOSPHAMIDE
     Indication: Enteropathy-associated T-cell lymphoma
     Dosage: UNK,  FOUR CYCLES
     Route: 065
  3. DOXORUBICIN [Concomitant]
     Active Substance: DOXORUBICIN
     Indication: Enteropathy-associated T-cell lymphoma
     Dosage: UNK,  FOUR CYCLES
     Route: 065
  4. ETOPOSIDE [Concomitant]
     Active Substance: ETOPOSIDE
     Indication: Enteropathy-associated T-cell lymphoma
     Dosage: UNK,  FOUR CYCLES
     Route: 065
  5. GEMCITABINE [Concomitant]
     Active Substance: GEMCITABINE
     Indication: Enteropathy-associated T-cell lymphoma
     Dosage: UNK, THREE CYCLES
     Route: 065
  6. CISPLATIN [Concomitant]
     Active Substance: CISPLATIN
     Indication: Enteropathy-associated T-cell lymphoma
     Dosage: UNK, THREE CYCLES
     Route: 065
  7. PRALATREXATE [Concomitant]
     Active Substance: PRALATREXATE
     Indication: Product used for unknown indication
     Dosage: UNK
     Route: 065

REACTIONS (1)
  - Drug ineffective [Unknown]
